FAERS Safety Report 18208956 (Version 1)
Quarter: 2020Q3

REPORT INFORMATION
  Report Type: Spontaneous
  Country: EG (occurrence: EG)
  Receive Date: 20200828
  Receipt Date: 20200828
  Transmission Date: 20201103
  Serious: Yes (Life-Threatening)
  Sender: FDA-Public Use
  Company Number: EG-FRESENIUS KABI-FK202008638

PATIENT
  Sex: Female

DRUGS (1)
  1. PROPOFOL 2% MCT FRESENIUS [Suspect]
     Active Substance: PROPOFOL
     Indication: PRODUCT USED FOR UNKNOWN INDICATION
     Dosage: AFTER DILUTION 1 PERCENT (14CM)
     Route: 065

REACTIONS (6)
  - Hypotension [Recovered/Resolved]
  - Shock [Recovered/Resolved]
  - Diarrhoea [Recovered/Resolved]
  - Chest discomfort [Recovered/Resolved]
  - Pyrexia [Recovered/Resolved]
  - Vomiting [Recovered/Resolved]
